FAERS Safety Report 6682325-2 (Version None)
Quarter: 2010Q2

REPORT INFORMATION
  Report Type: 
  Country: None (occurrence: None)
  Receive Date: 20100415
  Receipt Date: 20100331
  Transmission Date: 20101027
  Serious: Yes (Other)
  Sender: FDA-Public Use
  Company Number: IR-RANBAXY-2010RR-33077

PATIENT
  Age: 42 Month
  Sex: Male

DRUGS (1)
  1. TOPIRAMATE [Suspect]
     Indication: EPILEPSY
     Dosage: 125 MG, UNK

REACTIONS (2)
  - AGEUSIA [None]
  - ANOSMIA [None]
